FAERS Safety Report 23169731 (Version 6)
Quarter: 2024Q3

REPORT INFORMATION
  Report Type: Report from Study
  Country: CA (occurrence: CA)
  Receive Date: 20231110
  Receipt Date: 20240724
  Transmission Date: 20241017
  Serious: Yes (Other)
  Sender: JOHNSON AND JOHNSON
  Company Number: CA-JNJFOC-20230746455

PATIENT
  Age: 35 Year
  Sex: Female
  Weight: 95 kg

DRUGS (2)
  1. SIMPONI [Suspect]
     Active Substance: GOLIMUMAB
     Indication: Ankylosing spondylitis
     Dosage: DOSE:2.4 MG/KG
     Route: 041
     Dates: start: 20230831
  2. SIMPONI [Suspect]
     Active Substance: GOLIMUMAB
     Dosage: DOSE:2.4 MG/KG
     Route: 041
     Dates: start: 20230831

REACTIONS (13)
  - Hypertension [Unknown]
  - Endometritis [Unknown]
  - Ankylosing spondylitis [Not Recovered/Not Resolved]
  - Postpartum haemorrhage [Recovered/Resolved]
  - Pyrexia [Recovered/Resolved]
  - Off label use [Unknown]
  - Myalgia [Unknown]
  - Feeling abnormal [Unknown]
  - COVID-19 [Unknown]
  - Oedema peripheral [Unknown]
  - Exposure during pregnancy [Recovered/Resolved]
  - Back pain [Unknown]
  - Weight increased [Unknown]

NARRATIVE: CASE EVENT DATE: 20230101
